FAERS Safety Report 17546108 (Version 2)
Quarter: 2020Q2

REPORT INFORMATION
  Report Type: Report from Study
  Country: CN (occurrence: CN)
  Receive Date: 20200316
  Receipt Date: 20200429
  Transmission Date: 20200713
  Serious: Yes (Other)
  Sender: FDA-Public Use
  Company Number: CN-GUERBET-CN-20200042

PATIENT

DRUGS (3)
  1. LIPIODOL ULTRA-FLUIDE [Suspect]
     Active Substance: ETHIODIZED OIL
     Indication: TRANSCATHETER ARTERIAL CHEMOEMBOLISATION
     Dosage: 5 TO 20 ML
     Route: 013
  2. EPIRUBICIN [Concomitant]
     Active Substance: EPIRUBICIN
     Indication: TRANSCATHETER ARTERIAL CHEMOEMBOLISATION
     Dosage: 20-50 MG
     Route: 013
  3. OXALIPLATIN. [Concomitant]
     Active Substance: OXALIPLATIN
     Indication: TRANSCATHETER ARTERIAL CHEMOEMBOLISATION
     Dosage: 50-150 MG
     Route: 013

REACTIONS (2)
  - Biloma [Unknown]
  - Product use in unapproved indication [Unknown]
